FAERS Safety Report 7864163-8 (Version None)
Quarter: 2011Q4

REPORT INFORMATION
  Report Type: 
  Country: None (occurrence: None)
  Receive Date: 20111028
  Receipt Date: 20111024
  Transmission Date: 20120403
  Serious: Yes (Hospitalization)
  Sender: FDA-Public Use
  Company Number: SE-PFIZER INC-2011256482

PATIENT
  Age: 62 Year
  Sex: Female

DRUGS (7)
  1. ZOLOFT [Concomitant]
     Dosage: UNK
  2. LYRICA [Suspect]
     Dosage: 14-20 CAPSULES PER DAY
     Route: 048
     Dates: start: 20110101
  3. LYRICA [Suspect]
     Indication: DEPRESSION
     Dosage: 150 MG
     Route: 048
     Dates: start: 20110301
  4. DIAZEPAM [Concomitant]
     Dosage: UNK
  5. THERALEN [Concomitant]
     Dosage: UNK
  6. LYRICA [Suspect]
     Dosage: 150 MG, 3X/DAY
     Route: 048
     Dates: start: 20110101
  7. PROPAVAN [Concomitant]
     Dosage: UNK

REACTIONS (9)
  - VOMITING [None]
  - PAIN [None]
  - INCORRECT DOSE ADMINISTERED [None]
  - DIZZINESS [None]
  - DRUG ABUSE [None]
  - WITHDRAWAL SYNDROME [None]
  - DRUG TOLERANCE INCREASED [None]
  - ANXIETY [None]
  - ARTHRALGIA [None]
